FAERS Safety Report 17763844 (Version 1)
Quarter: 2020Q2

REPORT INFORMATION
  Report Type: Spontaneous
  Country: US (occurrence: US)
  Receive Date: 20200510
  Receipt Date: 20200510
  Transmission Date: 20200714
  Serious: No
  Sender: FDA-Public Use
  Company Number: US-TEVA-2020-US-1234424

PATIENT

DRUGS (1)
  1. SUMATRIPTAN INJECTABLE [Suspect]
     Active Substance: SUMATRIPTAN
     Indication: HEADACHE
     Route: 065

REACTIONS (1)
  - Injection site mass [Unknown]
